FAERS Safety Report 4757756-8 (Version None)
Quarter: 2005Q3

REPORT INFORMATION
  Report Type: 
  Country: None (occurrence: None)
  Receive Date: 20050830
  Receipt Date: 20050822
  Transmission Date: 20060218
  Serious: Yes (Hospitalization, Other)
  Sender: FDA-Public Use
  Company Number: 2005118552

PATIENT
  Sex: Female

DRUGS (2)
  1. LIPITOR [Suspect]
     Indication: ILL-DEFINED DISORDER
  2. QUININE SULFATE [Suspect]
     Indication: MUSCLE SPASMS

REACTIONS (3)
  - DRUG INTERACTION [None]
  - MUSCLE SPASMS [None]
  - PAIN [None]
